FAERS Safety Report 9529465 (Version 3)
Quarter: 2013Q4

REPORT INFORMATION
  Report Type: Spontaneous
  Country: US (occurrence: US)
  Receive Date: 20130917
  Receipt Date: 20131126
  Transmission Date: 20140711
  Serious: Yes (Other)
  Sender: FDA-Public Use
  Company Number: US-BAYER-2013-111390

PATIENT
  Age: 22 Year
  Sex: Female

DRUGS (1)
  1. MIRENA [Suspect]
     Indication: CONTRACEPTION
     Dosage: 20 ?G/D, CONT
     Route: 015
     Dates: start: 20130404, end: 20130623

REACTIONS (9)
  - Post procedural discomfort [None]
  - Genital haemorrhage [None]
  - Abdominal pain [None]
  - Medical device discomfort [None]
  - Poor quality sleep [None]
  - Nausea [None]
  - Device difficult to use [None]
  - Device dislocation [None]
  - Device misuse [None]
